FAERS Safety Report 12523400 (Version 1)
Quarter: 2016Q3

REPORT INFORMATION
  Report Type: Spontaneous
  Country: US (occurrence: US)
  Receive Date: 20160703
  Receipt Date: 20160703
  Transmission Date: 20161109
  Serious: No
  Sender: FDA-Public Use
  Company Number: US-ASTRAZENECA-2016SE70274

PATIENT
  Sex: Female
  Weight: 55.3 kg

DRUGS (4)
  1. LISINOPRIL HCTZ [Suspect]
     Active Substance: HYDROCHLOROTHIAZIDE\LISINOPRIL
     Indication: BLOOD PRESSURE ABNORMAL
     Dosage: 10/12.5 MG.,1 HALF TABLET TAKEN  DAILY
     Route: 048
     Dates: start: 2014
  2. METOPROLOL. [Suspect]
     Active Substance: METOPROLOL
     Route: 048
     Dates: start: 2014
  3. TOPROL XL [Suspect]
     Active Substance: METOPROLOL SUCCINATE
     Dosage: 50, MG DAILY
     Route: 048
     Dates: start: 201601
  4. LORAZEPAM. [Concomitant]
     Active Substance: LORAZEPAM
     Dosage: 0.5MG INTERMITTENT
     Route: 048

REACTIONS (5)
  - Blood pressure increased [Unknown]
  - Atrial fibrillation [Unknown]
  - Arrhythmia [Unknown]
  - Heart rate increased [Unknown]
  - Drug ineffective [Unknown]
